FAERS Safety Report 13477871 (Version 3)
Quarter: 2017Q2

REPORT INFORMATION
  Report Type: Report from Study
  Country: PL (occurrence: PL)
  Receive Date: 20170425
  Receipt Date: 20170531
  Transmission Date: 20170830
  Serious: Yes (Other)
  Sender: FDA-Public Use
  Company Number: PHHO2017PL007187

PATIENT
  Age: 60 Year
  Sex: Female
  Weight: 53 kg

DRUGS (2)
  1. LDK378 [Suspect]
     Active Substance: CERITINIB
     Indication: NON-SMALL CELL LUNG CANCER
     Dosage: 400 MG, UNK
     Route: 048
     Dates: start: 20170217, end: 20170402
  2. LDK378 [Suspect]
     Active Substance: CERITINIB
     Dosage: UNK
     Route: 048
     Dates: start: 20170516

REACTIONS (2)
  - Blood alkaline phosphatase increased [Recovering/Resolving]
  - Gamma-glutamyltransferase increased [Recovering/Resolving]

NARRATIVE: CASE EVENT DATE: 20170404
